FAERS Safety Report 9447205 (Version 2)
Quarter: 2014Q1

REPORT INFORMATION
  Report Type: Spontaneous
  Country: JP (occurrence: JP)
  Receive Date: 20130807
  Receipt Date: 20140220
  Transmission Date: 20141002
  Serious: Yes (Life-Threatening)
  Sender: FDA-Public Use
  Company Number: JP-009507513-1307JPN015147

PATIENT
  Age: 36 Year
  Sex: Male
  Weight: 70 kg

DRUGS (1)
  1. PROPECIA TABLETS 0.2MG [Suspect]
     Indication: ANDROGENETIC ALOPECIA
     Dosage: 0.2 MG, QD
     Route: 048
     Dates: start: 20130618, end: 20130624

REACTIONS (2)
  - Hepatic function abnormal [Recovering/Resolving]
  - Jaundice [Unknown]
